FAERS Safety Report 13709713 (Version 1)
Quarter: 2017Q3

REPORT INFORMATION
  Report Type: Spontaneous
  Country: US (occurrence: US)
  Receive Date: 20170703
  Receipt Date: 20170703
  Transmission Date: 20171127
  Serious: Yes (Hospitalization, Other)
  Sender: FDA-Public Use
  Company Number: US-AMGEN-USASP2017097498

PATIENT
  Age: 71 Year
  Sex: Male

DRUGS (1)
  1. TALIMOGENE LAHERPAREPVEC [Suspect]
     Active Substance: TALIMOGENE LAHERPAREPVEC
     Indication: OSTEOMA
     Dosage: 2 ML, UNK
     Route: 026
     Dates: start: 20160914, end: 20161130

REACTIONS (6)
  - Pyrexia [Unknown]
  - White blood cell count increased [Unknown]
  - Basal cell carcinoma [Unknown]
  - Fatigue [Unknown]
  - Metastases to lymph nodes [Unknown]
  - Pneumonia [Recovered/Resolved]

NARRATIVE: CASE EVENT DATE: 2016
